FAERS Safety Report 9908065 (Version 2)
Quarter: 2014Q4

REPORT INFORMATION
  Report Type: Spontaneous
  Country: US (occurrence: US)
  Receive Date: 20140219
  Receipt Date: 20141119
  Transmission Date: 20150529
  Serious: No
  Sender: FDA-Public Use
  Company Number: US-RANBAXY-2014US-78084

PATIENT
  Age: 58 Year
  Sex: Female

DRUGS (2)
  1. DOXYCYCLINE. [Suspect]
     Active Substance: DOXYCYCLINE
     Indication: MYCOBACTERIAL INFECTION
     Dosage: 100 MG, BID
     Route: 048
  2. MINOCYCLINE [Suspect]
     Active Substance: MINOCYCLINE\MINOCYCLINE HYDROCHLORIDE
     Indication: MYCOBACTERIAL INFECTION
     Dosage: 100 MG, BID
     Route: 048

REACTIONS (2)
  - Vertigo [Unknown]
  - Drug hypersensitivity [Unknown]
